FAERS Safety Report 15274963 (Version 1)
Quarter: 2018Q3

REPORT INFORMATION
  Report Type: Spontaneous
  Country: US (occurrence: US)
  Receive Date: 20180727
  Receipt Date: 20180727
  Transmission Date: 20181010
  Serious: Yes (Hospitalization)
  Sender: FDA-Public Use
  Company Number: None

PATIENT
  Age: 16 Year
  Sex: Female
  Weight: 39 kg

DRUGS (10)
  1. CLOFAZIMINE [Concomitant]
     Active Substance: CLOFAZIMINE
     Dates: start: 20171127, end: 20180416
  2. AZITHROMYCIN ANHYDROUS. [Concomitant]
     Active Substance: AZITHROMYCIN ANHYDROUS
     Dates: start: 20180205
  3. CLOFAZIMINE [Concomitant]
     Active Substance: CLOFAZIMINE
  4. CYCLOSPORINE. [Concomitant]
     Active Substance: CYCLOSPORINE
  5. MYCOPHENOLATE [Concomitant]
     Active Substance: MYCOPHENOLIC ACID
     Dates: start: 20180203
  6. TIGECYCLINE. [Suspect]
     Active Substance: TIGECYCLINE
     Indication: MYCOBACTERIUM ABSCESSUS INFECTION
     Route: 042
     Dates: start: 20170415, end: 20180709
  7. IMIPENEM?CILASTATIN [Concomitant]
     Active Substance: CILASTATIN SODIUM\IMIPENEM
     Dates: start: 20171114, end: 20180619
  8. PREDNISONE. [Concomitant]
     Active Substance: PREDNISONE
     Dates: start: 20180203
  9. TACROLIMUS. [Concomitant]
     Active Substance: TACROLIMUS
     Dates: start: 20180203, end: 20180504
  10. POSACONAZOLE [Concomitant]
     Active Substance: POSACONAZOLE
     Dates: start: 20180205, end: 20180405

REACTIONS (2)
  - Hypertriglyceridaemia [None]
  - Drug interaction [None]

NARRATIVE: CASE EVENT DATE: 20180412
